FAERS Safety Report 5467746-8 (Version None)
Quarter: 2007Q3

REPORT INFORMATION
  Report Type: 
  Country: None (occurrence: None)
  Receive Date: 20070926
  Receipt Date: 20070917
  Transmission Date: 20080115
  Serious: Yes (Hospitalization)
  Sender: FDA-Public Use
  Company Number: PHMT2007CA01889

PATIENT
  Age: 87 Year
  Sex: Female
  Weight: 53 kg

DRUGS (8)
  1. EXELON [Suspect]
     Indication: DEMENTIA ALZHEIMER'S TYPE
  2. LOSEC /CAN/ [Concomitant]
     Dosage: 20 MG, QD
     Dates: start: 20050501
  3. GLUCOPHAGE [Concomitant]
     Dosage: 1000 , BID
     Dates: start: 20050501
  4. ALTACE [Concomitant]
     Dosage: 2.5, QD
     Dates: start: 20050501
  5. NORVASC [Concomitant]
     Dosage: 5 QD
     Dates: start: 20050501
  6. ELAVIL [Concomitant]
     Dosage: 10 QHS
     Dates: start: 20060801
  7. PAXIL [Concomitant]
     Dosage: 10
     Dates: start: 20070201
  8. SERAX [Concomitant]
     Dosage: 10 QHS
     Dates: start: 20070201

REACTIONS (9)
  - ACTIVITIES OF DAILY LIVING IMPAIRED [None]
  - ANXIETY [None]
  - CEREBRAL ARTERIOSCLEROSIS [None]
  - CEREBRAL ATROPHY [None]
  - CONFUSIONAL STATE [None]
  - DISORIENTATION [None]
  - ENCEPHALOPATHY [None]
  - MENTAL DISORDER [None]
  - MENTAL DISORDER DUE TO A GENERAL MEDICAL CONDITION [None]
